FAERS Safety Report 8969082 (Version 2)
Quarter: 2013Q1

REPORT INFORMATION
  Report Type: Report from Study
  Country: JP (occurrence: JP)
  Receive Date: 20121218
  Receipt Date: 20130104
  Transmission Date: 20140127
  Serious: Yes (Life-Threatening)
  Sender: FDA-Public Use
  Company Number: JP-CUBIST PHARMACEUTICAL, INC.-2012CBST000062

PATIENT
  Sex: 0

DRUGS (5)
  1. CUBICIN [Suspect]
     Indication: SEPSIS
     Dosage: 6 MG/KG, QD
     Route: 041
     Dates: start: 20121016, end: 20121026
  2. CUBICIN [Suspect]
     Indication: OFF LABEL USE
  3. CARNACULIN                         /00088101/ [Concomitant]
     Indication: BRAIN STEM INFARCTION
     Dosage: 150 UNK, QD
     Route: 048
     Dates: start: 20121016
  4. ALFAROL [Concomitant]
     Indication: OSTEOPOROSIS
     Dosage: 1 ?G, QD
     Route: 048
     Dates: start: 20121016
  5. PLETAAL [Concomitant]
     Indication: PERIPHERAL ARTERIAL OCCLUSIVE DISEASE
     Dosage: 200 MG, QD
     Route: 048
     Dates: start: 20121016

REACTIONS (7)
  - White blood cell count increased [Not Recovered/Not Resolved]
  - Aspartate aminotransferase increased [Not Recovered/Not Resolved]
  - Alanine aminotransferase increased [Not Recovered/Not Resolved]
  - Blood lactate dehydrogenase increased [Not Recovered/Not Resolved]
  - Gamma-glutamyltransferase increased [Not Recovered/Not Resolved]
  - Blood chromium increased [Not Recovered/Not Resolved]
  - Blood creatine phosphokinase increased [Recovered/Resolved]
